FAERS Safety Report 8923278 (Version 4)
Quarter: 2013Q4

REPORT INFORMATION
  Report Type: Spontaneous
  Country: DK (occurrence: DK)
  Receive Date: 20121124
  Receipt Date: 20131021
  Transmission Date: 20140711
  Serious: Yes (Other)
  Sender: FDA-Public Use
  Company Number: PHHY2012DK106565

PATIENT
  Age: 51 Year
  Sex: Female
  Weight: 69 kg

DRUGS (14)
  1. VINORELBINE TARTRATE [Suspect]
     Indication: HER-2 POSITIVE BREAST CANCER
     Dates: start: 20121026
  2. OXALIPLATIN [Suspect]
     Indication: HER-2 POSITIVE BREAST CANCER
  3. PACLITAXEL [Suspect]
     Indication: BREAST CANCER
     Route: 042
     Dates: start: 20061206, end: 20070606
  4. PACLITAXEL [Suspect]
     Route: 042
     Dates: end: 20070727
  5. HERCEPTIN [Suspect]
     Indication: HER-2 POSITIVE BREAST CANCER
     Dosage: 140 MG
     Dates: start: 20061129, end: 20080326
  6. HERCEPTIN [Suspect]
     Dosage: 280 MG (OADING DOSE 280 MG)
     Dates: start: 20061129, end: 20080326
  7. XELODA [Suspect]
     Indication: HER-2 POSITIVE BREAST CANCER
  8. XELODA [Suspect]
  9. TAXOL [Suspect]
     Indication: HER-2 POSITIVE BREAST CANCER
     Dosage: 260 MG (DOSE 140/120MG)
     Route: 042
     Dates: start: 20061206, end: 20070606
  10. TAXOL [Suspect]
     Indication: BREAST CANCER
  11. ARIMIDEX [Suspect]
     Indication: HER-2 POSITIVE BREAST CANCER
  12. ARIMIDEX [Suspect]
     Indication: PRODUCT USED FOR UNKNOWN INDICATION
  13. ZOLADEX [Suspect]
     Indication: HER-2 POSITIVE BREAST CANCER
  14. FASLODEX [Suspect]
     Indication: HER-2 POSITIVE BREAST CANCER
     Route: 042

REACTIONS (7)
  - Ejection fraction decreased [Recovered/Resolved]
  - Peripheral motor neuropathy [Not Recovered/Not Resolved]
  - Metastases to liver [Unknown]
  - Peripheral sensory neuropathy [Not Recovered/Not Resolved]
  - Neuralgia [Not Recovered/Not Resolved]
  - Hypertension [Not Recovered/Not Resolved]
  - Dyspnoea exertional [Not Recovered/Not Resolved]
